FAERS Safety Report 21700960 (Version 1)
Quarter: 2022Q4

REPORT INFORMATION
  Report Type: Report from Study
  Country: CA (occurrence: CA)
  Receive Date: 20221208
  Receipt Date: 20221208
  Transmission Date: 20230113
  Serious: Yes (Hospitalization, Other)
  Sender: FDA-Public Use
  Company Number: CA-002147023-NVSC2022CA283042

PATIENT
  Age: 66 Year
  Sex: Male
  Weight: 113.38 kg

DRUGS (3)
  1. ALBUTEROL [Suspect]
     Active Substance: ALBUTEROL
     Indication: Dyspnoea
     Dosage: UNK
     Route: 065
  2. SYMBICORT [Suspect]
     Active Substance: BUDESONIDE\FORMOTEROL FUMARATE DIHYDRATE
     Indication: Product used for unknown indication
     Dosage: UNK, BID
     Route: 065
  3. SPIRIVA [Suspect]
     Active Substance: TIOTROPIUM BROMIDE MONOHYDRATE
     Indication: Product used for unknown indication
     Dosage: UNK
     Route: 065

REACTIONS (19)
  - Chest pain [Unknown]
  - Idiopathic pulmonary fibrosis [Unknown]
  - Interstitial lung disease [Unknown]
  - Dyspnoea [Unknown]
  - Productive cough [Not Recovered/Not Resolved]
  - Lymph node calcification [Unknown]
  - Forced expiratory volume decreased [Recovering/Resolving]
  - Forced vital capacity decreased [Unknown]
  - Total lung capacity decreased [Unknown]
  - Restrictive pulmonary disease [Unknown]
  - Lung diffusion test decreased [Unknown]
  - Arteriosclerosis coronary artery [Unknown]
  - Bronchiectasis [Unknown]
  - Hepatic cyst [Unknown]
  - Splenic granuloma [Unknown]
  - Hiatus hernia [Unknown]
  - Lung opacity [Unknown]
  - Pulmonary septal thickening [Unknown]
  - Infection [Unknown]
